FAERS Safety Report 7814588-1 (Version None)
Quarter: 2011Q4

REPORT INFORMATION
  Report Type: 
  Country: None (occurrence: None)
  Receive Date: 20111014
  Receipt Date: 20111004
  Transmission Date: 20120403
  Serious: Yes (Hospitalization)
  Sender: FDA-Public Use
  Company Number: CA-CELGENEUS-028-50794-11100555

PATIENT
  Age: 66 Year
  Sex: Female

DRUGS (1)
  1. VIDAZA [Suspect]
     Dosage: 75 MILLIGRAM/SQ. METER
     Route: 041
     Dates: start: 20090901

REACTIONS (2)
  - CYTOMEGALOVIRUS COLITIS [None]
  - FEBRILE NEUTROPENIA [None]
